FAERS Safety Report 18831836 (Version 2)
Quarter: 2021Q1

REPORT INFORMATION
  Report Type: Spontaneous
  Country: US (occurrence: US)
  Receive Date: 20210201
  Receipt Date: 20210319
  Transmission Date: 20210419
  Serious: Yes (Other)
  Sender: FDA-Public Use
  Company Number: US-ABBVIE-20K-163-3701963-00

PATIENT
  Sex: Male

DRUGS (1)
  1. HUMIRA [Suspect]
     Active Substance: ADALIMUMAB
     Indication: RHEUMATOID ARTHRITIS
     Route: 058

REACTIONS (8)
  - Blindness unilateral [Recovering/Resolving]
  - Loss of personal independence in daily activities [Unknown]
  - Muscle strain [Unknown]
  - Mobility decreased [Unknown]
  - Ankylosing spondylitis [Unknown]
  - Bone disorder [Unknown]
  - Uveitis [Unknown]
  - Gait disturbance [Unknown]
